FAERS Safety Report 21206205 (Version 3)
Quarter: 2022Q4

REPORT INFORMATION
  Report Type: Spontaneous
  Country: US (occurrence: US)
  Receive Date: 20220812
  Receipt Date: 20221206
  Transmission Date: 20230112
  Serious: Yes (Life-Threatening, Hospitalization, Other)
  Sender: FDA-Public Use
  Company Number: US-CIPLA LTD.-2022US04815

PATIENT
  Age: 17 Year
  Sex: Female

DRUGS (4)
  1. AMLODIPINE [Suspect]
     Active Substance: AMLODIPINE BESYLATE
     Dosage: 500 TO 550 MILLIGRAM, TOTAL
     Route: 048
     Dates: start: 202107
  2. IBUPROFEN [Suspect]
     Active Substance: IBUPROFEN
     Dosage: UNK
     Route: 048
     Dates: start: 202107
  3. ACETAMINOPHEN [Suspect]
     Active Substance: ACETAMINOPHEN
     Dosage: UNK
     Route: 048
     Dates: start: 202107
  4. AMOXICILLIN [Suspect]
     Active Substance: AMOXICILLIN
     Dosage: UNK
     Route: 048

REACTIONS (10)
  - Cerebrovascular accident [Recovering/Resolving]
  - Acute kidney injury [Recovering/Resolving]
  - Vasoplegia syndrome [Recovering/Resolving]
  - Circulatory collapse [Recovering/Resolving]
  - Visual field defect [Recovering/Resolving]
  - Infarction [Recovering/Resolving]
  - Seizure [Recovering/Resolving]
  - Unresponsive to stimuli [Recovering/Resolving]
  - Intentional overdose [Recovering/Resolving]
  - Toxicity to various agents [Recovering/Resolving]

NARRATIVE: CASE EVENT DATE: 20210701
